FAERS Safety Report 22156589 (Version 1)
Quarter: 2023Q1

REPORT INFORMATION
  Report Type: Report from Study
  Country: GB (occurrence: GB)
  Receive Date: 20230330
  Receipt Date: 20230330
  Transmission Date: 20230417
  Serious: Yes (Other)
  Sender: FDA-Public Use
  Company Number: GB-PFIZER INC-PV202300056121

PATIENT

DRUGS (7)
  1. CISPLATIN [Suspect]
     Active Substance: CISPLATIN
     Indication: Germ cell cancer metastatic
     Dosage: UNK UNK, CYCLIC (EVERY 2 WEEKS)
  2. VINCRISTINE SULFATE [Suspect]
     Active Substance: VINCRISTINE SULFATE
     Indication: Germ cell cancer metastatic
     Dosage: UNK UNK, CYCLIC (EVERY 2 WEEKS)
  3. METHOTREXATE SODIUM [Suspect]
     Active Substance: METHOTREXATE SODIUM
     Indication: Germ cell cancer metastatic
     Dosage: UNK UNK, CYCLIC (EVERY 2 WEEKS)
  4. ETOPOSIDE [Suspect]
     Active Substance: ETOPOSIDE
     Indication: Germ cell cancer metastatic
     Dosage: UNK UNK, CYCLIC (EVERY 2 WEEKS)
  5. CYCLOPHOSPHAMIDE [Suspect]
     Active Substance: CYCLOPHOSPHAMIDE
     Indication: Germ cell cancer metastatic
     Dosage: UNK UNK, CYCLIC (EVERY 2 WEEKS)
  6. ACTINOMYCIN D [Suspect]
     Active Substance: DACTINOMYCIN
     Indication: Germ cell cancer metastatic
     Dosage: UNK UNK, CYCLIC (EVERY 2 WEEKS)
  7. BLEOMYCIN [Suspect]
     Active Substance: BLEOMYCIN SULFATE
     Indication: Germ cell cancer metastatic
     Dosage: UNK UNK, CYCLIC (EVERY 2 WEEKS)

REACTIONS (1)
  - Cardiac failure [Unknown]
